FAERS Safety Report 9109935 (Version 1)
Quarter: 2013Q1

REPORT INFORMATION
  Report Type: Spontaneous
  Country: FR (occurrence: FR)
  Receive Date: 20130222
  Receipt Date: 20130222
  Transmission Date: 20140127
  Serious: Yes (Death, Hospitalization)
  Sender: FDA-Public Use
  Company Number: FR-ACTELION-A-CH2013-79601

PATIENT
  Age: 85 Year
  Sex: Female

DRUGS (7)
  1. TRACLEER [Suspect]
     Indication: PRODUCT USED FOR UNKNOWN INDICATION
     Dosage: 62.5 MG, BID
     Route: 048
     Dates: start: 20130118, end: 20130215
  2. PREVISCAN [Concomitant]
  3. MIANSERINE [Concomitant]
  4. LASILIX [Concomitant]
  5. CORDARONE [Concomitant]
  6. ATARAX [Concomitant]
  7. OXYGEN [Concomitant]

REACTIONS (4)
  - Cardiopulmonary failure [Fatal]
  - Cardiac failure [Fatal]
  - Renal failure acute [Fatal]
  - Oedema peripheral [Fatal]
